FAERS Safety Report 5385380-5 (Version None)
Quarter: 2007Q3

REPORT INFORMATION
  Report Type: 
  Country: None (occurrence: None)
  Receive Date: 20070712
  Receipt Date: 20070703
  Transmission Date: 20080115
  Serious: Yes (Life-Threatening, Hospitalization)
  Sender: FDA-Public Use
  Company Number: ES-ROCHE-505350

PATIENT
  Age: 69 Year
  Sex: Male
  Weight: 60 kg

DRUGS (16)
  1. CAPECITABINE [Suspect]
     Indication: GASTRIC CANCER
     Dosage: GIVEN TWICE DAILY ON DAYS ONE TO FOURTEEN OF EVERY THREE-WEEK-CYCLE (FROM PM OF DAY ONE TO AM OF DA+
     Route: 048
     Dates: start: 20070611, end: 20070701
  2. CISPLATIN [Suspect]
     Indication: GASTRIC CANCER
     Dosage: GIVEN ON DAY ONE OF EVERY THREE-WEEK-CYCLE. FORM: INFUSION.
     Route: 042
     Dates: start: 20070611, end: 20070701
  3. PLANTAGO OVATA [Concomitant]
  4. IRON [Concomitant]
     Dosage: REPORTED AS IRON (FE).
  5. SIMVASTATIN [Concomitant]
  6. BUFLOMEDIL [Concomitant]
  7. METFORMINE [Concomitant]
  8. GLIPIZIDE [Concomitant]
  9. OMEPRAZOLE [Concomitant]
     Dosage: TDD ILLEGIBLE.
  10. VITAMIN B-12 [Concomitant]
  11. ONDANSETRON [Concomitant]
     Dates: start: 20070611
  12. METOCLOPRAMIDE [Concomitant]
     Dates: start: 20070611
  13. CIPROFLOXACIN HCL [Concomitant]
     Dates: start: 20070626, end: 20070701
  14. METAMIZOL [Concomitant]
     Dosage: REPORTED AS MEDAMIZOL.
     Dates: start: 20070626, end: 20070701
  15. MYCOSTATIN [Concomitant]
     Dates: start: 20070626, end: 20070701
  16. FENTANIL [Concomitant]
     Dosage: REPORTED AS PHENTANILE.

REACTIONS (1)
  - SEPTIC SHOCK [None]
